FAERS Safety Report 4654031-7 (Version None)
Quarter: 2005Q2

REPORT INFORMATION
  Report Type: 
  Country: None (occurrence: None)
  Receive Date: 20050504
  Receipt Date: 20050419
  Transmission Date: 20051028
  Serious: Yes (Other)
  Sender: FDA-Public Use
  Company Number: CA-SHR-03-010974

PATIENT
  Age: 49 Year
  Sex: Female

DRUGS (4)
  1. BETASERON [Suspect]
     Indication: MULTIPLE SCLEROSIS
     Dosage: 8 MIU, EVERY 2D, SUBCUTANEOUS
     Route: 058
     Dates: start: 20001205
  2. ATIVAN [Concomitant]
  3. VOLTAREN [Concomitant]
  4. HALIBUT CAPSULES [Concomitant]

REACTIONS (1)
  - HAEMOCHROMATOSIS [None]
